FAERS Safety Report 6105506-5 (Version None)
Quarter: 2009Q1

REPORT INFORMATION
  Report Type: 
  Country: None (occurrence: None)
  Receive Date: 20090306
  Receipt Date: 20090227
  Transmission Date: 20090719
  Serious: Yes (Death, Hospitalization)
  Sender: FDA-Public Use
  Company Number: A0771656A

PATIENT
  Age: 73 Year
  Sex: Female
  Weight: 81.8 kg

DRUGS (14)
  1. AVANDIA [Suspect]
     Indication: DIABETES MELLITUS
     Dosage: 8MG PER DAY
     Route: 048
     Dates: start: 20010101, end: 20060101
  2. ACTOS [Concomitant]
  3. GLUCOPHAGE [Concomitant]
  4. INSULIN [Concomitant]
  5. AMARYL [Concomitant]
  6. METOPROLOL TARTRATE [Concomitant]
  7. PREDNISONE [Concomitant]
  8. ELAVIL [Concomitant]
  9. CELEXA [Concomitant]
  10. NEURONTIN [Concomitant]
  11. ACTONEL [Concomitant]
  12. LEVOTHYROXINE SODIUM [Concomitant]
  13. FENTANYL-100 [Concomitant]
  14. ALBUTEROL [Concomitant]

REACTIONS (3)
  - ARTERIOSCLEROSIS CORONARY ARTERY [None]
  - CARDIAC FAILURE CONGESTIVE [None]
  - DEATH [None]
